FAERS Safety Report 6789184-8 (Version None)
Quarter: 2010Q2

REPORT INFORMATION
  Report Type: 
  Country: None (occurrence: None)
  Receive Date: 20100623
  Receipt Date: 20081028
  Transmission Date: 20101027
  Serious: No
  Sender: FDA-Public Use
  Company Number: US-PFIZER INC-2008054129

PATIENT
  Sex: Female
  Weight: 90.72 kg

DRUGS (5)
  1. CADUET [Suspect]
     Indication: HYPERTENSION
     Dosage: TDD:10/20MG
     Dates: start: 20080516, end: 20080701
  2. CADUET [Suspect]
     Indication: HYPERLIPIDAEMIA
  3. LEVOTHYROXINE SODIUM [Concomitant]
     Indication: HYPOTHYROIDISM
  4. PRINZIDE [Concomitant]
  5. MOBIC [Concomitant]

REACTIONS (4)
  - DISCOMFORT [None]
  - JOINT SWELLING [None]
  - OEDEMA PERIPHERAL [None]
  - WEIGHT INCREASED [None]
